FAERS Safety Report 10904789 (Version 3)
Quarter: 2015Q2

REPORT INFORMATION
  Report Type: Spontaneous
  Country: CN (occurrence: CN)
  Receive Date: 20150311
  Receipt Date: 20150605
  Transmission Date: 20150821
  Serious: Yes (Hospitalization, Other)
  Sender: FDA-Public Use
  Company Number: CN-ASTRAZENECA-2015SE20785

PATIENT
  Age: 74 Year
  Sex: Male

DRUGS (7)
  1. BRILINTA [Suspect]
     Active Substance: TICAGRELOR
     Route: 048
  2. INSULIN [Concomitant]
     Active Substance: INSULIN NOS
  3. BRILINTA [Suspect]
     Active Substance: TICAGRELOR
     Route: 048
  4. CRESTOR [Concomitant]
     Active Substance: ROSUVASTATIN CALCIUM
  5. LOSARTAN POTASSIUM. [Concomitant]
     Active Substance: LOSARTAN POTASSIUM
  6. BAYASPIRIN [Concomitant]
     Active Substance: ASPIRIN
  7. BETALOC ZOK [Concomitant]
     Active Substance: METOPROLOL SUCCINATE

REACTIONS (3)
  - Respiratory disorder [Unknown]
  - Gastrointestinal haemorrhage [Recovered/Resolved]
  - Blood iron decreased [Unknown]
